FAERS Safety Report 24647207 (Version 1)
Quarter: 2024Q4

REPORT INFORMATION
  Report Type: Spontaneous
  Country: GB (occurrence: GB)
  Receive Date: 20241121
  Receipt Date: 20241121
  Transmission Date: 20250115
  Serious: Yes (Other)
  Sender: TEVA
  Company Number: None

PATIENT
  Age: 76 Year
  Sex: Female

DRUGS (1)
  1. CLARITHROMYCIN [Suspect]
     Active Substance: CLARITHROMYCIN
     Indication: Helicobacter infection
     Route: 065
     Dates: start: 20241023, end: 20241024

REACTIONS (3)
  - Hypotension [Recovering/Resolving]
  - Syncope [Recovering/Resolving]
  - Asthenia [Recovering/Resolving]

NARRATIVE: CASE EVENT DATE: 20241023
